FAERS Safety Report 15364909 (Version 2)
Quarter: 2018Q4

REPORT INFORMATION
  Report Type: Spontaneous
  Country: DE (occurrence: DE)
  Receive Date: 20180910
  Receipt Date: 20181005
  Transmission Date: 20190204
  Serious: Yes (Other)
  Sender: FDA-Public Use
  Company Number: DE-AUROBINDO-AUR-APL-2018-044981

PATIENT
  Age: 77 Year
  Sex: Female
  Weight: 85 kg

DRUGS (39)
  1. PANITUMUMAB [Suspect]
     Active Substance: PANITUMUMAB
     Dosage: 510 MG, UNK
     Route: 042
     Dates: start: 20180828
  2. FLUOROURACIL. [Suspect]
     Active Substance: FLUOROURACIL
     Dosage: 2400 MILLIGRAM
     Route: 042
     Dates: start: 20180605
  3. ERYPO                              /00928301/ [Concomitant]
     Active Substance: ERYTHROPOIETIN
     Indication: ANAEMIA
     Dosage: 40 INTERNATIONAL UNIT, EVERY WEEK (40 IU, QWK)
     Route: 058
  4. OXALIPLATIN. [Suspect]
     Active Substance: OXALIPLATIN
     Indication: COLORECTAL CANCER METASTATIC
     Dosage: 85 MG, UNK
     Route: 065
     Dates: start: 20180605
  5. OXALIPLATIN. [Suspect]
     Active Substance: OXALIPLATIN
     Dosage: 85 MG, UNK
     Route: 065
     Dates: start: 20180717
  6. PANITUMUMAB [Suspect]
     Active Substance: PANITUMUMAB
     Indication: COLORECTAL CANCER METASTATIC
     Dosage: 510 MG, UNK
     Route: 042
     Dates: start: 20180605
  7. NOVALGIN                           /00169801/ [Concomitant]
     Active Substance: ACETAMINOPHEN\CAFFEINE\PROPYPHENAZONE
     Indication: SCIATICA
     Dosage: 4500 MILLIGRAM, DAILY (1500 MG, TID)
     Route: 048
  8. FOLINIC ACID [Suspect]
     Active Substance: LEUCOVORIN
     Dosage: 800 MG, UNK
     Route: 065
     Dates: start: 20180731
  9. FOLINIC ACID [Suspect]
     Active Substance: LEUCOVORIN
     Dosage: 800 MG, UNK
     Route: 065
     Dates: start: 20180828
  10. FLUOROURACIL. [Suspect]
     Active Substance: FLUOROURACIL
     Indication: COLORECTAL CANCER METASTATIC
     Dosage: 800 MG, UNK
     Route: 040
     Dates: start: 20180605
  11. FLUOROURACIL. [Suspect]
     Active Substance: FLUOROURACIL
     Dosage: 2400 MG, UNK
     Route: 042
     Dates: start: 20180619
  12. TORASEMID-RATIOPHARM [Concomitant]
     Active Substance: TORSEMIDE
     Indication: PRODUCT USED FOR UNKNOWN INDICATION
     Dosage: 10 MILLIGRAM, DAILY (10 MG, QD)
     Route: 048
  13. TORASEMID-RATIOPHARM [Concomitant]
     Active Substance: TORSEMIDE
     Dosage: 10 MG, QD
     Route: 048
  14. PANTOPRAZOL RATIOPHARM [Concomitant]
     Active Substance: PANTOPRAZOLE SODIUM
     Indication: PRODUCT USED FOR UNKNOWN INDICATION
     Dosage: 40 MILLIGRAM, DAILY (40 MG, QD)
     Route: 048
  15. BISOPROLOL-RATIOPHARM [Concomitant]
     Dosage: 5 MG, QD
     Route: 048
  16. PANITUMUMAB [Suspect]
     Active Substance: PANITUMUMAB
     Dosage: 510 MG, UNK
     Route: 042
     Dates: start: 20180703
  17. FLUOROURACIL. [Suspect]
     Active Substance: FLUOROURACIL
     Dosage: 2400 MG, UNK
     Route: 042
     Dates: start: 20180828
  18. TILIDIN [Concomitant]
     Active Substance: NALOXONE HYDROCHLORIDE\TILIDINE HYDROCHLORIDE
     Indication: PRODUCT USED FOR UNKNOWN INDICATION
     Dosage: 48 MILLIGRAM, DAILY (24 MG, BID)
     Route: 048
  19. PREDNISOLON-RATIOPHARM             /00016201/ [Concomitant]
     Indication: PSORIATIC ARTHROPATHY
     Dosage: 5 MILLIGRAM, DAILY (5 MG, QD)
     Route: 048
  20. FOLINIC ACID [Suspect]
     Active Substance: LEUCOVORIN
     Indication: COLORECTAL CANCER METASTATIC
     Dosage: 800 MG, UNK
     Route: 065
     Dates: start: 20180605
  21. FOLINIC ACID [Suspect]
     Active Substance: LEUCOVORIN
     Dosage: 800 MG, UNK
     Route: 065
     Dates: start: 20180703
  22. FOLINIC ACID [Suspect]
     Active Substance: LEUCOVORIN
     Dosage: 800 MG, UNK
     Route: 065
     Dates: start: 20180911
  23. FOLINIC ACID [Suspect]
     Active Substance: LEUCOVORIN
     Dosage: 800 MG, UNK
     Route: 065
     Dates: start: 20180717
  24. FLUOROURACIL. [Suspect]
     Active Substance: FLUOROURACIL
     Dosage: 2400 MG, UNK
     Route: 042
     Dates: start: 20180703
  25. PANTOPRAZOL RATIOPHARM [Concomitant]
     Active Substance: PANTOPRAZOLE SODIUM
     Dosage: 40 MG, QD
     Route: 048
  26. PANITUMUMAB [Suspect]
     Active Substance: PANITUMUMAB
     Dosage: 510 MG, UNK
     Route: 042
     Dates: start: 20180731
  27. PANITUMUMAB [Suspect]
     Active Substance: PANITUMUMAB
     Dosage: 510 MG, UNK
     Route: 042
     Dates: start: 20180911
  28. FLUOROURACIL. [Suspect]
     Active Substance: FLUOROURACIL
     Dosage: 2400 MG, UNK
     Route: 042
     Dates: start: 20180717
  29. FLUOROURACIL. [Suspect]
     Active Substance: FLUOROURACIL
     Dosage: 2400 MG, UNK
     Route: 042
     Dates: start: 20180731
  30. L-THYROXIN HENNING [Concomitant]
     Active Substance: LEVOTHYROXINE SODIUM
     Indication: PRODUCT USED FOR UNKNOWN INDICATION
     Dosage: 75 MICROGRAM, DAILY (75 MUG, QD)
     Route: 048
  31. BISOPROLOL-RATIOPHARM [Concomitant]
     Indication: HYPERTENSION
     Dosage: 5 MILLIGRAM, DAILY (5 MG, QD)
     Route: 048
  32. OXALIPLATIN. [Suspect]
     Active Substance: OXALIPLATIN
     Dosage: 85 MG, UNK
     Route: 065
     Dates: start: 20180703
  33. L-THYROXIN HENNING [Concomitant]
     Active Substance: LEVOTHYROXINE SODIUM
     Dosage: 75 MUG, QD
     Route: 048
  34. TILIDIN [Concomitant]
     Active Substance: NALOXONE HYDROCHLORIDE\TILIDINE HYDROCHLORIDE
     Dosage: 24 MG, BID
     Route: 048
  35. FOLINIC ACID [Suspect]
     Active Substance: LEUCOVORIN
     Dosage: 800 MG, UNK
     Route: 065
     Dates: start: 20180619
  36. OXALIPLATIN. [Suspect]
     Active Substance: OXALIPLATIN
     Dosage: 85 MG, UNK
     Route: 065
     Dates: start: 20180619
  37. FLUOROURACIL. [Suspect]
     Active Substance: FLUOROURACIL
     Dosage: 800 MG, UNK
     Route: 040
     Dates: start: 20180911
  38. MIRTAZAPINA RATIOPHARM [Concomitant]
     Active Substance: MIRTAZAPINE
     Indication: PRODUCT USED FOR UNKNOWN INDICATION
     Dosage: 15 MILLIGRAM, DAILY (15 MG, QD)
     Route: 048
  39. MIRTAZAPINA RATIOPHARM [Concomitant]
     Active Substance: MIRTAZAPINE
     Dosage: 15 MG, QD
     Route: 048

REACTIONS (3)
  - Bone pain [Recovered/Resolved]
  - Paraesthesia [Not Recovered/Not Resolved]
  - Deafness neurosensory [Not Recovered/Not Resolved]

NARRATIVE: CASE EVENT DATE: 20180814
